FAERS Safety Report 6894286-1 (Version None)
Quarter: 2010Q3

REPORT INFORMATION
  Report Type: 
  Country: None (occurrence: None)
  Receive Date: 20100802
  Receipt Date: 20080607
  Transmission Date: 20110219
  Serious: No
  Sender: FDA-Public Use
  Company Number: US-PFIZER INC-2006126634

PATIENT
  Sex: Male

DRUGS (3)
  1. NORVASC [Suspect]
     Route: 048
     Dates: start: 20060724
  2. BENAZEPRIL HYDROCHLORIDE [Suspect]
     Route: 048
     Dates: start: 20060724
  3. LEXAPRO [Suspect]

REACTIONS (2)
  - BLOOD SODIUM DECREASED [None]
  - PSORIASIS [None]
